FAERS Safety Report 7902993-4 (Version None)
Quarter: 2011Q4

REPORT INFORMATION
  Report Type: 
  Country: None (occurrence: None)
  Receive Date: 20111107
  Receipt Date: 20111021
  Transmission Date: 20120403
  Serious: Yes (Hospitalization, Other)
  Sender: FDA-Public Use
  Company Number: 2011MA015913

PATIENT
  Age: 66 Year
  Sex: Female

DRUGS (3)
  1. TRIAMCINOLONE ACETONIDE [Suspect]
     Indication: SPINAL COLUMN STENOSIS
     Dosage: 10X, TRANSFORAMINAL
  2. CALCIUM [Concomitant]
  3. BIPHOSPHONATE [Concomitant]

REACTIONS (12)
  - PAIN IN EXTREMITY [None]
  - SPINAL LIGAMENT OSSIFICATION [None]
  - PARAESTHESIA [None]
  - CAUDA EQUINA SYNDROME [None]
  - INTERVERTEBRAL DISC CALCIFICATION [None]
  - AREFLEXIA [None]
  - TOXICITY TO VARIOUS AGENTS [None]
  - MUSCULAR WEAKNESS [None]
  - DISEASE PROGRESSION [None]
  - VERTEBRAL COLUMN MASS [None]
  - NO THERAPEUTIC RESPONSE [None]
  - DYSTROPHIC CALCIFICATION [None]
